FAERS Safety Report 4618993-6 (Version None)
Quarter: 2005Q1

REPORT INFORMATION
  Report Type: 
  Country: None (occurrence: None)
  Receive Date: 20050325
  Receipt Date: 20050315
  Transmission Date: 20050727
  Serious: Yes (Hospitalization)
  Sender: FDA-Public Use
  Company Number: 200510953FR

PATIENT
  Age: 30 Year
  Sex: Male

DRUGS (6)
  1. KETEK [Suspect]
     Indication: PYREXIA
     Route: 048
  2. KETEK [Suspect]
     Indication: SINUSITIS
     Route: 048
  3. MUCOMYST [Concomitant]
     Indication: PYREXIA
  4. MUCOMYST [Concomitant]
     Indication: SINUSITIS
  5. PARACETAMOL [Concomitant]
     Indication: PYREXIA
     Route: 048
  6. PARACETAMOL [Concomitant]
     Indication: SINUSITIS
     Route: 048

REACTIONS (5)
  - CSF LYMPHOCYTE COUNT INCREASED [None]
  - DYSURIA [None]
  - MYELITIS [None]
  - POLLAKIURIA [None]
  - URINARY RETENTION [None]
